FAERS Safety Report 4495641-X (Version None)
Quarter: 2004Q4

REPORT INFORMATION
  Report Type: 
  Country: None (occurrence: None)
  Receive Date: 20041108
  Receipt Date: 20041021
  Transmission Date: 20050328
  Serious: Yes (Hospitalization)
  Sender: FDA-Public Use
  Company Number: JP-MERCK-0410USA03828

PATIENT
  Age: 65 Year
  Sex: Male

DRUGS (5)
  1. COZAAR [Suspect]
     Indication: HYPERTENSION
     Route: 048
     Dates: end: 20041018
  2. LASIX [Suspect]
     Route: 065
     Dates: end: 20041018
  3. CORTONE [Suspect]
     Route: 048
     Dates: end: 20041018
  4. PEPCID [Suspect]
     Route: 048
     Dates: end: 20041018
  5. BAYASPIRIN [Suspect]
     Indication: THROMBOLYSIS
     Route: 048
     Dates: end: 20041018

REACTIONS (3)
  - ANAPHYLACTOID REACTION [None]
  - RENAL IMPAIRMENT [None]
  - RHABDOMYOLYSIS [None]
